FAERS Safety Report 4402709-2 (Version None)
Quarter: 2004Q3

REPORT INFORMATION
  Report Type: 
  Country: None (occurrence: None)
  Receive Date: 20040721
  Receipt Date: 20040202
  Transmission Date: 20050211
  Serious: No
  Sender: FDA-Public Use
  Company Number: US-BRISTOL-MYERS SQUIBB COMPANY-12493730

PATIENT
  Age: 28 Year
  Sex: Male
  Weight: 82 kg

DRUGS (1)
  1. DOVONEX [Suspect]
     Route: 061
     Dates: start: 20031201

REACTIONS (2)
  - HYPERKERATOSIS [None]
  - SKIN CHAPPED [None]
